FAERS Safety Report 4361202-6 (Version None)
Quarter: 2004Q2

REPORT INFORMATION
  Report Type: 
  Country: None (occurrence: None)
  Receive Date: 20040505
  Receipt Date: 20030304
  Transmission Date: 20050107
  Serious: Yes (Other)
  Sender: FDA-Public Use
  Company Number: 10026886-NA01-1

PATIENT

DRUGS (1)
  1. 2G3503-1G CEFAZOLIN INJ, ISO-OSMOTICIN 50 ML [Suspect]
     Dosage: 1GM IN 50MLS ADMINISTERED VIA EPIDURAL CATHETER IN ERROR
     Route: 008
     Dates: start: 20030301

REACTIONS (1)
  - MEDICATION ERROR [None]
